FAERS Safety Report 8421922-0 (Version None)
Quarter: 2012Q2

REPORT INFORMATION
  Report Type: 
  Country: None (occurrence: None)
  Receive Date: 20120608
  Receipt Date: 20120530
  Transmission Date: 20120825
  Serious: Yes (Hospitalization)
  Sender: FDA-Public Use
  Company Number: JP-ELI_LILLY_AND_COMPANY-JP201205008702

PATIENT
  Age: 85 Year
  Sex: Female

DRUGS (9)
  1. ZETIA [Concomitant]
     Dosage: UNK
     Route: 065
  2. LIPIDIL [Concomitant]
     Dosage: UNK
     Route: 065
  3. REFLEX                             /01293201/ [Concomitant]
     Dosage: UNK
     Route: 065
  4. PLETAL [Concomitant]
     Dosage: UNK
     Route: 065
  5. MERISLON [Concomitant]
     Dosage: UNK
     Route: 065
  6. LEVOFLOXACIN [Concomitant]
     Dosage: UNK
     Route: 065
  7. FORTEO [Suspect]
     Dosage: UNK
     Route: 058
     Dates: end: 20120521
  8. RABEPRAZOLE SODIUM [Concomitant]
     Dosage: UNK
     Route: 065
  9. DEPAS [Concomitant]
     Dosage: UNK
     Route: 065

REACTIONS (2)
  - HOSPITALISATION [None]
  - ASTHENIA [None]
